FAERS Safety Report 8827151 (Version 1)
Quarter: 2012Q4

REPORT INFORMATION
  Report Type: 
  Country: US (occurrence: US)
  Receive Date: 20121008
  Receipt Date: 20121008
  Transmission Date: 20130627
  Serious: No
  Sender: FDA-Public Use
  Company Number: US-BIOGENIDEC-2012BI042471

PATIENT
  Sex: Female

DRUGS (2)
  1. TYSABRI [Suspect]
     Indication: PRODUCT USED FOR UNKNOWN INDICATION
     Route: 042
  2. AMPYRA [Concomitant]
     Route: 048
     Dates: start: 20120521

REACTIONS (4)
  - Cow^s milk intolerance [Unknown]
  - Insomnia [Unknown]
  - Fatigue [Unknown]
  - Urinary tract infection [Unknown]
